FAERS Safety Report 6671778-1 (Version None)
Quarter: 2010Q2

REPORT INFORMATION
  Report Type: 
  Country: None (occurrence: None)
  Receive Date: 20100405
  Receipt Date: 20100405
  Transmission Date: 20101027
  Serious: No
  Sender: FDA-Public Use
  Company Number: None

PATIENT
  Age: 53 Year
  Sex: Female
  Weight: 63.5036 kg

DRUGS (1)
  1. BUTORPHANOL TARATRATE [Suspect]
     Indication: PAIN
     Dosage: 1 SPRAY IN ONE NOSTRIL THREE TIMES DAILY NASAL
     Route: 045
     Dates: start: 20090907, end: 20100315

REACTIONS (3)
  - HYPOGEUSIA [None]
  - HYPOSMIA [None]
  - NASAL CONGESTION [None]
